FAERS Safety Report 26114644 (Version 4)
Quarter: 2025Q4

REPORT INFORMATION
  Report Type: Report from Study
  Country: CA (occurrence: CA)
  Receive Date: 20251202
  Receipt Date: 20251229
  Transmission Date: 20260118
  Serious: Yes (Other)
  Sender: ABBVIE
  Company Number: CA-ABBVIE-6569959

PATIENT
  Age: 86 Year
  Sex: Male

DRUGS (48)
  1. VENCLEXTA [Suspect]
     Active Substance: VENETOCLAX
     Indication: Acute myeloid leukaemia
     Dosage: MODIFICATION TO THE DAILY DOSE: DOSE INCREASE ?REASON FOR ENDING THE TREATMENT DOSE: DOSE CHANGE/...
     Route: 048
     Dates: start: 20241210, end: 20241210
  2. VENCLEXTA [Suspect]
     Active Substance: VENETOCLAX
     Indication: Acute myeloid leukaemia
     Dosage: REASON FOR ENDING THE TREATMENT DOSE: END OF CYCLE ?REASON FOR INCREASING THE DAILY DOSE OF VENET...
     Route: 048
     Dates: start: 20241211, end: 20250105
  3. VENCLEXTA [Suspect]
     Active Substance: VENETOCLAX
     Indication: Acute myeloid leukaemia
     Dosage: REASON FOR ENDING THE TREATMENT DOSE: END OF CYCLE, IN REMISSION
     Route: 048
     Dates: start: 20250106, end: 20250120
  4. VENCLEXTA [Suspect]
     Active Substance: VENETOCLAX
     Indication: Acute myeloid leukaemia
     Dosage: REASON FOR ENDING THE TREATMENT DOSE: END OF CYCLE
     Route: 048
     Dates: start: 20250203, end: 20250217
  5. VENCLEXTA [Suspect]
     Active Substance: VENETOCLAX
     Indication: Acute myeloid leukaemia
     Dosage: REASON FOR ENDING THE TREATMENT DOSE: END OF CYCLE
     Route: 048
     Dates: start: 20250303, end: 20250317
  6. VENCLEXTA [Suspect]
     Active Substance: VENETOCLAX
     Indication: Acute myeloid leukaemia
     Dosage: REASON FOR ENDING THE TREATMENT DOSE: END OF CYCLE
     Route: 048
     Dates: start: 20250526, end: 20250601
  7. VENCLEXTA [Suspect]
     Active Substance: VENETOCLAX
     Indication: Acute myeloid leukaemia
     Route: 048
     Dates: start: 20241209, end: 20241209
  8. AZACITIDINE [Suspect]
     Active Substance: AZACITIDINE
     Indication: Acute myeloid leukaemia
     Dosage: REASON FOR ENDING THE TREATMENT DOSE: DUE TO CLINIC HOURS, AZACITIDINE WAS NOT GIVEN ON WEEKEND.
     Route: 065
     Dates: start: 20241015, end: 20241018
  9. AZACITIDINE [Suspect]
     Active Substance: AZACITIDINE
     Indication: Acute myeloid leukaemia
     Dosage: REASON FOR ENDING THE TREATMENT DOSE: END OF CYCLE
     Route: 065
     Dates: start: 20241021, end: 20241023
  10. AZACITIDINE [Suspect]
     Active Substance: AZACITIDINE
     Indication: Acute myeloid leukaemia
     Dosage: REASON FOR ENDING THE TREATMENT DOSE: END OF CYCLE
     Route: 065
     Dates: start: 20241111, end: 20241117
  11. AZACITIDINE [Suspect]
     Active Substance: AZACITIDINE
     Indication: Acute myeloid leukaemia
     Dosage: REASON FOR ENDING THE TREATMENT DOSE: DUE TO CLINIC HOURS, AZACITIDINE WAS NOT GIVEN ON WEEKEND.
     Route: 065
     Dates: start: 20241209, end: 20241213
  12. AZACITIDINE [Suspect]
     Active Substance: AZACITIDINE
     Indication: Acute myeloid leukaemia
     Dosage: REASON FOR ENDING THE TREATMENT DOSE: END OF CYCLE
     Route: 065
     Dates: start: 20241216, end: 20241217
  13. AZACITIDINE [Suspect]
     Active Substance: AZACITIDINE
     Indication: Acute myeloid leukaemia
     Dosage: REASON FOR ENDING THE TREATMENT DOSE: DUE TO WEEKEND HOURS CLINIC WAS CLOSED , TREATMENT WAS NOT ...
     Route: 048
     Dates: start: 20250106, end: 20250110
  14. AZACITIDINE [Suspect]
     Active Substance: AZACITIDINE
     Indication: Acute myeloid leukaemia
     Dosage: REASON FOR ENDING THE TREATMENT DOSE: END OF CYCLE
     Route: 065
     Dates: start: 20250113, end: 20250114
  15. AZACITIDINE [Suspect]
     Active Substance: AZACITIDINE
     Indication: Acute myeloid leukaemia
     Dosage: REASON FOR ENDING THE TREATMENT DOSE: DUE TO CLINIC HOURS ON WEEKEND PARTICIPANT DID NOT RECEIVE ...
     Route: 065
     Dates: start: 20250203, end: 20250207
  16. AZACITIDINE [Suspect]
     Active Substance: AZACITIDINE
     Indication: Acute myeloid leukaemia
     Dosage: REASON FOR ENDING THE TREATMENT DOSE: END OF CYCLE
     Route: 065
     Dates: start: 20250210, end: 20250211
  17. AZACITIDINE [Suspect]
     Active Substance: AZACITIDINE
     Indication: Acute myeloid leukaemia
     Dosage: REASON FOR ENDING THE TREATMENT DOSE: DUE TO CLINIC HOURS, AZACITIDINE WAS NOT GIVEN ON WEEKEND.
     Route: 048
     Dates: start: 20250303, end: 20250307
  18. AZACITIDINE [Suspect]
     Active Substance: AZACITIDINE
     Indication: Acute myeloid leukaemia
     Dosage: REASON FOR ENDING THE TREATMENT DOSE: END OF CYCLE
     Route: 065
     Dates: start: 20250310, end: 20250311
  19. AZACITIDINE [Suspect]
     Active Substance: AZACITIDINE
     Indication: Acute myeloid leukaemia
     Dosage: REASON FOR ENDING THE TREATMENT DOSE: DUE TO CLINIC HOURS, AZACITIDINE WAS NOT GIVEN ON WEEKEND.)
     Route: 065
     Dates: start: 20250818, end: 20250822
  20. AZACITIDINE [Suspect]
     Active Substance: AZACITIDINE
     Indication: Acute myeloid leukaemia
     Dosage: REASON FOR ENDING THE TREATMENT DOSE: END OF CYCLE
     Route: 065
     Dates: start: 20250825, end: 20250826
  21. AZACITIDINE [Suspect]
     Active Substance: AZACITIDINE
     Indication: Acute myeloid leukaemia
     Dosage: REASON FOR ENDING THE TREATMENT DOSE: END OF CYCLE
     Dates: start: 20250602, end: 20250603
  22. AZACITIDINE [Suspect]
     Active Substance: AZACITIDINE
     Indication: Acute myeloid leukaemia
     Dosage: REASON FOR ENDING THE TREATMENT DOSE: OTHER (IF OTHER, SPECIFY: DUE TO CLINIC HOURS AZACITIDINE N...
     Route: 065
     Dates: start: 20250526, end: 20250530
  23. ALBUTEROL [Concomitant]
     Active Substance: ALBUTEROL
     Indication: Pneumonia
     Dosage: EVERY 4HOURS OR PRN?ROA: RESPIRATORY (INHALATION)
     Dates: start: 20250806, end: 20250811
  24. AMOXICILLIN [Concomitant]
     Active Substance: AMOXICILLIN
     Indication: Pneumonia
     Route: 048
     Dates: start: 20250808, end: 20250815
  25. AMOXICILLIN [Concomitant]
     Active Substance: AMOXICILLIN
     Indication: Pneumonia
     Route: 048
     Dates: start: 20250808, end: 20250815
  26. VITAMIN C [Concomitant]
     Active Substance: ASCORBIC ACID
     Indication: Routine health maintenance
     Route: 048
     Dates: start: 1998
  27. VITAMIN D [Concomitant]
     Active Substance: VITAMIN D NOS
     Indication: Routine health maintenance
     Route: 048
     Dates: start: 1998
  28. ATORVASTATIN [Concomitant]
     Active Substance: ATORVASTATIN
     Indication: Blood cholesterol
     Route: 048
     Dates: start: 1998
  29. DUTASTERIDE [Concomitant]
     Active Substance: DUTASTERIDE
     Indication: Benign prostatic hyperplasia
     Route: 048
     Dates: start: 2015
  30. TAMSULOSIN [Concomitant]
     Active Substance: TAMSULOSIN
     Indication: Benign prostatic hyperplasia
     Route: 048
     Dates: start: 2015
  31. SERTRALINE [Concomitant]
     Active Substance: SERTRALINE HYDROCHLORIDE
     Indication: Anxiety
     Route: 048
     Dates: start: 20191202
  32. ASPIRIN [Concomitant]
     Active Substance: ASPIRIN
     Indication: Ischaemic heart disease prophylaxis
     Route: 048
     Dates: start: 1999
  33. LEVOFLOXACIN [Concomitant]
     Active Substance: LEVOFLOXACIN
     Indication: Urinary tract infection
     Route: 048
     Dates: start: 20241115, end: 20241122
  34. TINZAPARIN [Concomitant]
     Active Substance: TINZAPARIN
     Indication: Ischaemic heart disease prophylaxis
     Route: 058
     Dates: start: 20240927
  35. SENOKOT [Concomitant]
     Active Substance: SENNOSIDES
     Indication: Constipation
     Dosage: TIME INTERVAL: AS NECESSARY: 1-2 TABS
     Route: 048
     Dates: start: 20241211
  36. PIPERACILLIN AND TAZOBACTAM [Concomitant]
     Active Substance: PIPERACILLIN SODIUM\TAZOBACTAM SODIUM
     Indication: Pneumonia
     Route: 042
     Dates: start: 20250807, end: 20250808
  37. LEVOFLOXACIN [Concomitant]
     Active Substance: LEVOFLOXACIN
     Indication: Pharyngitis
     Route: 048
     Dates: start: 20251014, end: 20251022
  38. HYDROXYCHLOROQUINE [Concomitant]
     Active Substance: HYDROXYCHLOROQUINE
     Indication: Systemic lupus erythematosus
     Dosage: Q SATURDAY
     Route: 048
     Dates: start: 2018
  39. HYDROXYCHLOROQUINE [Concomitant]
     Active Substance: HYDROXYCHLOROQUINE
     Indication: Systemic lupus erythematosus
     Route: 048
     Dates: start: 2018
  40. GRANISETRON [Concomitant]
     Active Substance: GRANISETRON
     Indication: Prophylaxis of nausea and vomiting
     Dosage: TIME INTERVAL: AS NECESSARY
     Route: 048
     Dates: start: 20241210
  41. FUROSEMIDE [Concomitant]
     Active Substance: FUROSEMIDE
     Indication: Diuretic therapy
     Route: 042
     Dates: start: 20250303
  42. ALLOPURINOL [Concomitant]
     Active Substance: ALLOPURINOL
     Indication: Blast cell count increased
     Route: 048
     Dates: start: 20251028
  43. ALLOPURINOL [Concomitant]
     Active Substance: ALLOPURINOL
     Indication: Blast cell count increased
     Route: 048
     Dates: start: 20241202
  44. FLUOROURACIL [Concomitant]
     Active Substance: FLUOROURACIL
     Indication: Rash
     Dosage: TIME INTERVAL: 0.33333333 WEEKS: ROA: TOPICAL
     Dates: start: 20241211
  45. ACETAMINOPHEN [Concomitant]
     Active Substance: ACETAMINOPHEN
     Indication: Pyrexia
     Dosage: EVERY 8 HOURS OR PRN
     Dates: start: 20250807
  46. HYDROXYUREA [Concomitant]
     Active Substance: HYDROXYUREA
     Indication: Blast cell count increased
     Route: 048
     Dates: start: 20251113
  47. VANCOMYCIN [Concomitant]
     Active Substance: VANCOMYCIN
     Indication: Infection
     Route: 042
     Dates: start: 20251029, end: 20251029
  48. VANCOMYCIN [Concomitant]
     Active Substance: VANCOMYCIN
     Indication: Infection
     Route: 042
     Dates: start: 20251029, end: 20251030

REACTIONS (1)
  - Prostate cancer metastatic [Not Recovered/Not Resolved]

NARRATIVE: CASE EVENT DATE: 20251023
